FAERS Safety Report 9324057 (Version 1)
Quarter: 2013Q2

REPORT INFORMATION
  Report Type: Spontaneous
  Country: US (occurrence: US)
  Receive Date: 20130603
  Receipt Date: 20130603
  Transmission Date: 20140414
  Serious: No
  Sender: FDA-Public Use
  Company Number: US-PFIZER INC-2013164629

PATIENT
  Age: 67 Year
  Sex: Female
  Weight: 59.86 kg

DRUGS (7)
  1. LEVOTHYROXINE SODIUM [Suspect]
     Indication: AUTOIMMUNE THYROIDITIS
     Dosage: 88 UG, DAILY
     Dates: start: 2013
  2. LEVOTHYROXINE SODIUM [Suspect]
     Dosage: UNK
     Dates: end: 2013
  3. SYNTHROID [Suspect]
     Indication: AUTOIMMUNE THYROIDITIS
     Dosage: 88 UG, DAILY
     Dates: start: 201305
  4. SYNTHROID [Suspect]
     Dosage: UNK
     Dates: end: 2013
  5. LIPITOR [Concomitant]
     Indication: CARDIAC DISORDER
     Dosage: 80 MG, DAILY
  6. ASPIRIN [Concomitant]
     Indication: CARDIAC DISORDER
     Dosage: 81 MG, DAILY
  7. FUROSEMIDE [Concomitant]
     Indication: CARDIAC DISORDER
     Dosage: 20 MG, DAILY

REACTIONS (4)
  - Dyspnoea [Unknown]
  - Rash [Unknown]
  - Pruritus [Unknown]
  - Drug hypersensitivity [Unknown]
